FAERS Safety Report 4492801-9 (Version None)
Quarter: 2004Q4

REPORT INFORMATION
  Report Type: 
  Country: None (occurrence: None)
  Receive Date: 20041102
  Receipt Date: 20041102
  Transmission Date: 20050328
  Serious: No
  Sender: FDA-Public Use
  Company Number: None

PATIENT
  Age: 76 Year
  Sex: Female

DRUGS (2)
  1. PRILOSEC [Suspect]
     Indication: GASTRITIS EROSIVE
     Dosage: 40 MG QD
     Dates: start: 20040801, end: 20041026
  2. PROTONIX [Suspect]
     Dosage: 40 MG QD
     Dates: start: 20041026, end: 20041029

REACTIONS (2)
  - EOSINOPHIL COUNT INCREASED [None]
  - NEPHRITIS INTERSTITIAL [None]
